FAERS Safety Report 6759978-3 (Version None)
Quarter: 2010Q2

REPORT INFORMATION
  Report Type: 
  Country: None (occurrence: None)
  Receive Date: 20100604
  Receipt Date: 20100520
  Transmission Date: 20101027
  Serious: Yes (Death)
  Sender: FDA-Public Use
  Company Number: 2010002056

PATIENT
  Age: 86 Year
  Sex: Male
  Weight: 51 kg

DRUGS (7)
  1. ERLOTINIB (ERLOTINIB) (TABLET) (ERLOTINIB) [Suspect]
     Indication: NON-SMALL CELL LUNG CANCER
     Dosage: (150 MG, QD), ORAL
     Route: 048
     Dates: start: 20081128, end: 20090822
  2. CARNACULIN (PANCREAS EXTRACT) [Concomitant]
  3. ALLEGRA [Concomitant]
  4. CELESTAMINE (CELESTAMINE) [Concomitant]
  5. ATARAX [Concomitant]
  6. PLETAL [Concomitant]
  7. ASPIRIN [Concomitant]

REACTIONS (2)
  - HEPATIC FUNCTION ABNORMAL [None]
  - SEPSIS [None]
